FAERS Safety Report 5130107-5 (Version None)
Quarter: 2006Q4

REPORT INFORMATION
  Report Type: 
  Country: None (occurrence: None)
  Receive Date: 20061013
  Receipt Date: 20060928
  Transmission Date: 20070319
  Serious: Yes (Hospitalization)
  Sender: FDA-Public Use
  Company Number: FR200604003094

PATIENT
  Age: 66 Year
  Sex: Female

DRUGS (12)
  1. FORTEO [Suspect]
     Indication: OSTEOPOROSIS
     Dosage: 20 UG, DAILY (1/D), SUBCUTANEOUS
     Route: 058
     Dates: start: 20051021
  2. FORTEO [Concomitant]
  3. PERINDOPRIL ERBUMINE [Concomitant]
  4. DILTIAZEM HYDROCHLORIDE [Concomitant]
  5. FONZYLANE (BUFLOMEDIL HYDROCHLORIDE) [Concomitant]
  6. MOLSIDOMINE [Concomitant]
  7. ASPIRIN [Concomitant]
  8. ATORVASTATIN CALCIUM [Concomitant]
  9. BROMAZEPAM [Concomitant]
  10. CLONAZEPAM [Concomitant]
  11. ZAMUDOL (TRAMADOL HYDROCHLORIDE) [Concomitant]
  12. ACETAMINOPHEN [Concomitant]

REACTIONS (6)
  - CLOSTRIDIUM DIFFICILE COLITIS [None]
  - GASTRIC ULCER [None]
  - OEDEMA PERIPHERAL [None]
  - PAIN IN EXTREMITY [None]
  - PSEUDOMEMBRANOUS COLITIS [None]
  - WEIGHT DECREASED [None]
